FAERS Safety Report 16866114 (Version 1)
Quarter: 2019Q3

REPORT INFORMATION
  Report Type: Spontaneous
  Country: US (occurrence: US)
  Receive Date: 20190930
  Receipt Date: 20190930
  Transmission Date: 20191005
  Serious: No
  Sender: FDA-Public Use
  Company Number: US-ALLERGAN-1927291US

PATIENT
  Age: 45 Year
  Sex: Male

DRUGS (3)
  1. LOT OF MEDICATIONS [Concomitant]
     Indication: BIPOLAR I DISORDER
  2. LOT OF MEDICATIONS [Concomitant]
     Indication: SCHIZOPHRENIA
  3. VRAYLAR [Suspect]
     Active Substance: CARIPRAZINE
     Indication: SCHIZOPHRENIA
     Dosage: 10 MG, UNKNOWN FREQUENCY
     Route: 048
     Dates: start: 201906

REACTIONS (4)
  - Schizophreniform disorder [Unknown]
  - Abnormal behaviour [Unknown]
  - Hallucination [Unknown]
  - Paranoia [Unknown]

NARRATIVE: CASE EVENT DATE: 201906
